FAERS Safety Report 21362444 (Version 1)
Quarter: 2022Q3

REPORT INFORMATION
  Report Type: Spontaneous
  Country: EG (occurrence: EG)
  Receive Date: 20220922
  Receipt Date: 20220922
  Transmission Date: 20221027
  Serious: Yes (Other)
  Sender: FDA-Public Use
  Company Number: EG-NOVOPROD-958798

PATIENT
  Age: 802 Month
  Sex: Female

DRUGS (8)
  1. SELENIUM [Concomitant]
     Active Substance: SELENIUM
     Indication: Multi-vitamin deficiency
     Dosage: 1 TAB/DAY
     Route: 048
  2. GLUCOPHAGE [Concomitant]
     Active Substance: METFORMIN HYDROCHLORIDE
     Indication: Diabetes mellitus
     Dosage: 1000 MG, BID
     Route: 048
  3. HYDROCHLOROTHIAZIDE\IRBESARTAN [Concomitant]
     Active Substance: HYDROCHLOROTHIAZIDE\IRBESARTAN
     Dosage: 1 TAB./DAY (150/12.5 MG)
     Route: 048
  4. HYDROCHLOROTHIAZIDE\IRBESARTAN [Concomitant]
     Active Substance: HYDROCHLOROTHIAZIDE\IRBESARTAN
     Indication: Hypertension
     Dosage: 1 TAB./DAY (300/25 MG)
     Route: 048
  5. NEUROBION FORTE [Concomitant]
     Active Substance: CYANOCOBALAMIN\PYRIDOXINE HYDROCHLORIDE\THIAMINE DISULFIDE
     Indication: Nerve injury
     Dosage: 2 TAB. AT ONCE DAILY
     Route: 048
  6. INSULIN HUMAN [Suspect]
     Active Substance: INSULIN HUMAN
     Indication: Diabetes mellitus
     Dosage: 60 IU, QD (40 IU MORNING AND 20 IU NIGHT)
     Route: 058
     Dates: start: 2009
  7. INSULIN HUMAN [Suspect]
     Active Substance: INSULIN HUMAN
     Dosage: 40 IU, QD (25 IU MORNING AND 15 IU NIGHT)
     Route: 058
  8. CALCIUM DOBESILATE [Concomitant]
     Active Substance: CALCIUM DOBESILATE
     Indication: Eye disorder
     Dosage: 2 TAB./DAY
     Route: 048
     Dates: start: 2019

REACTIONS (4)
  - Eye disorder [Not Recovered/Not Resolved]
  - Papilloedema [Not Recovered/Not Resolved]
  - Increased appetite [Unknown]
  - Diabetes mellitus inadequate control [Unknown]

NARRATIVE: CASE EVENT DATE: 20200601
